FAERS Safety Report 21936027 (Version 1)
Quarter: 2023Q1

REPORT INFORMATION
  Report Type: Report from Study
  Country: US (occurrence: US)
  Receive Date: 20230201
  Receipt Date: 20230201
  Transmission Date: 20230418
  Serious: No
  Sender: FDA-Public Use
  Company Number: US-INCYTE CORPORATION-2020IN005786

PATIENT

DRUGS (1)
  1. PEMIGATINIB [Suspect]
     Active Substance: PEMIGATINIB
     Indication: Cholangiocarcinoma
     Dosage: 13.5 MILLIGRAM 14 DAYS ON, 7 DAYS OFF
     Route: 065
     Dates: start: 20200603

REACTIONS (6)
  - Fatigue [Not Recovered/Not Resolved]
  - Dysgeusia [Unknown]
  - Stomatitis [Unknown]
  - Dry mouth [Unknown]
  - Dry skin [Unknown]
  - Dry eye [Unknown]
